FAERS Safety Report 20144203 (Version 5)
Quarter: 2022Q4

REPORT INFORMATION
  Report Type: Spontaneous
  Country: CA (occurrence: CA)
  Receive Date: 20211203
  Receipt Date: 20221219
  Transmission Date: 20230112
  Serious: Yes (Other)
  Sender: FDA-Public Use
  Company Number: CA-BAUSCH-BL-2021-039548

PATIENT
  Age: 24 Year
  Sex: Female
  Weight: 65 kg

DRUGS (12)
  1. METRONIDAZOLE [Suspect]
     Active Substance: METRONIDAZOLE
     Indication: Product used for unknown indication
     Dosage: NOT SPECIFIED.
     Route: 065
  2. BUDESONIDE [Suspect]
     Active Substance: BUDESONIDE
     Indication: Product used for unknown indication
     Dosage: NOT SPECIFIED.
     Route: 065
  3. MESALAMINE [Suspect]
     Active Substance: MESALAMINE
     Indication: Product used for unknown indication
     Dosage: NOT SPECIFIED.
     Route: 065
  4. CIPROFLOXACIN HYDROCHLORIDE [Suspect]
     Active Substance: CIPROFLOXACIN HYDROCHLORIDE
     Indication: Product used for unknown indication
     Route: 065
  5. HUMIRA [Suspect]
     Active Substance: ADALIMUMAB
     Indication: Product used for unknown indication
     Route: 058
  6. HUMIRA [Suspect]
     Active Substance: ADALIMUMAB
     Route: 065
  7. METHOTREXATE [Suspect]
     Active Substance: METHOTREXATE
     Indication: Product used for unknown indication
     Dosage: NOT SPECIFIED.
     Route: 048
  8. METHOTREXATE [Suspect]
     Active Substance: METHOTREXATE
     Route: 065
  9. METHOTREXATE [Suspect]
     Active Substance: METHOTREXATE
     Route: 065
  10. METRONIDAZOLE BENZOATE [Suspect]
     Active Substance: METRONIDAZOLE BENZOATE
     Indication: Product used for unknown indication
     Route: 065
  11. ELAVIL [Concomitant]
     Active Substance: AMITRIPTYLINE HYDROCHLORIDE
     Indication: Product used for unknown indication
     Route: 048
  12. ELAVIL [Concomitant]
     Active Substance: AMITRIPTYLINE HYDROCHLORIDE
     Route: 065

REACTIONS (3)
  - Crohn^s disease [Unknown]
  - Anxiety [Unknown]
  - Drug ineffective [Unknown]
